FAERS Safety Report 16202333 (Version 2)
Quarter: 2019Q3

REPORT INFORMATION
  Report Type: Report from Study
  Country: US (occurrence: US)
  Receive Date: 20190416
  Receipt Date: 20190709
  Transmission Date: 20191004
  Serious: No
  Sender: FDA-Public Use
  Company Number: US-SA-2019SA100868

PATIENT
  Age: 82 Year
  Sex: Female

DRUGS (2)
  1. DUPILUMAB [Suspect]
     Active Substance: DUPILUMAB
     Indication: ECZEMA
  2. DUPILUMAB [Suspect]
     Active Substance: DUPILUMAB
     Indication: DERMATITIS ATOPIC
     Dosage: 300 MG, QOW
     Route: 058
     Dates: start: 20190306

REACTIONS (3)
  - Pruritus [Recovering/Resolving]
  - Therapeutic product effect decreased [Recovering/Resolving]
  - Injection site mass [Recovered/Resolved]

NARRATIVE: CASE EVENT DATE: 2019
